FAERS Safety Report 9209841 (Version 1)
Quarter: 2013Q1

REPORT INFORMATION
  Report Type: Spontaneous
  Country: US (occurrence: None)
  Receive Date: 20120820
  Receipt Date: 20120820
  Transmission Date: 20140127
  Serious: No
  Sender: FDA-Public Use
  Company Number: 1000037135

PATIENT
  Age: 58 Year
  Sex: Male

DRUGS (2)
  1. VIIBRYD (VILAZODONE) (TABLETS) [Suspect]
     Indication: DEPRESSION
     Dosage: 10 MG, 1 IN 1 D
     Route: 048
     Dates: start: 20120707, end: 20120716
  2. KLONOPIN [Concomitant]

REACTIONS (2)
  - Diarrhoea [None]
  - Insomnia [None]
